FAERS Safety Report 5587539-0 (Version None)
Quarter: 2007Q4

REPORT INFORMATION
  Report Type: 
  Country: None (occurrence: None)
  Receive Date: 20071210
  Receipt Date: 20070215
  Transmission Date: 20080405
  Serious: Yes (Other)
  Sender: FDA-Public Use
  Company Number: 2007012902

PATIENT
  Age: 55 Year
  Sex: Female
  Weight: 99.8 kg

DRUGS (5)
  1. ARTHROTEC [Suspect]
     Indication: PAIN
     Dosage: 75 MG (75 MG, 1 IN 1 D)
     Dates: start: 20070214
  2. PAXIL [Concomitant]
  3. ALBUTEROL [Concomitant]
  4. ALL OTHER THERAPEUTIC PRODUCTS (ALL OTHER THERAPEUTIC PRODUCTS) [Concomitant]
  5. LORTAB [Concomitant]

REACTIONS (3)
  - ABDOMINAL PAIN [None]
  - EMOTIONAL DISORDER [None]
  - VAGINAL HAEMORRHAGE [None]
